FAERS Safety Report 12879698 (Version 1)
Quarter: 2016Q4

REPORT INFORMATION
  Report Type: Report from Study
  Country: None (occurrence: US)
  Receive Date: 20161025
  Receipt Date: 20161025
  Transmission Date: 20170207
  Serious: Yes (Other)
  Sender: FDA-Public Use
  Company Number: US-ABBVIE-16K-163-1760048-00

PATIENT
  Sex: Male

DRUGS (1)
  1. HUMIRA [Suspect]
     Active Substance: ADALIMUMAB
     Indication: ERYTHEMA NODOSUM
     Route: 058
     Dates: start: 201503

REACTIONS (2)
  - Erythema nodosum [Unknown]
  - Cardiac disorder [Unknown]
